FAERS Safety Report 16706928 (Version 1)
Quarter: 2019Q3

REPORT INFORMATION
  Report Type: Spontaneous
  Country: US (occurrence: US)
  Receive Date: 20190628
  Receipt Date: 20190628
  Transmission Date: 20191004
  Serious: Yes (Other)
  Sender: FDA-Public Use
  Company Number: None

PATIENT
  Age: 61 Year
  Sex: Female

DRUGS (21)
  1. METHOCARBAMOL. [Concomitant]
     Active Substance: METHOCARBAMOL
  2. NALOXONE [Concomitant]
     Active Substance: NALOXONE
  3. HYDROXYCHLOROQUINE [Concomitant]
     Active Substance: HYDROXYCHLOROQUINE
  4. SPIRONOLACTONE. [Concomitant]
     Active Substance: SPIRONOLACTONE
  5. COLHICINE [Concomitant]
  6. RANITIDINE. [Concomitant]
     Active Substance: RANITIDINE
  7. FLUOROURACIL TOP SOLN [Concomitant]
  8. MS CONTIN [Suspect]
     Active Substance: MORPHINE SULFATE
  9. LORAZEPAM. [Concomitant]
     Active Substance: LORAZEPAM
  10. GABAPENTIN. [Concomitant]
     Active Substance: GABAPENTIN
  11. OMEPRAZOLE. [Concomitant]
     Active Substance: OMEPRAZOLE
  12. ALBUTEROL HFA [Concomitant]
     Active Substance: ALBUTEROL SULFATE
  13. CELLCEPT [Concomitant]
     Active Substance: MYCOPHENOLATE MOFETIL\MYCOPHENOLATE MOFETIL HYDROCHLORIDE
  14. OPSUMIT [Suspect]
     Active Substance: MACITENTAN
     Indication: PULMONARY HYPERTENSION
     Route: 048
     Dates: start: 201803
  15. FUROSEMIDE. [Concomitant]
     Active Substance: FUROSEMIDE
  16. METOPROLOL. [Concomitant]
     Active Substance: METOPROLOL
  17. ALBUTERNOL NEB SOLN [Concomitant]
  18. SILDENAFIL. [Concomitant]
     Active Substance: SILDENAFIL
  19. PERCOCET [Concomitant]
     Active Substance: ACETAMINOPHEN\OXYCODONE HYDROCHLORIDE
  20. DULCEX [Concomitant]
  21. TRETINOIN TOP CREAM [Concomitant]

REACTIONS (4)
  - Arthralgia [None]
  - Skin laceration [None]
  - Fall [None]
  - Injury [None]

NARRATIVE: CASE EVENT DATE: 20190616
